FAERS Safety Report 10645626 (Version 2)
Quarter: 2014Q4

REPORT INFORMATION
  Report Type: Report from Study
  Country: CA (occurrence: CA)
  Receive Date: 20141211
  Receipt Date: 20141211
  Transmission Date: 20150529
  Serious: Yes (Hospitalization)
  Sender: FDA-Public Use
  Company Number: CA-EISAI MEDICAL RESEARCH-E2007-01646-SOL-CA

PATIENT
  Age: 35 Year
  Sex: Female

DRUGS (6)
  1. FYCOMPA [Suspect]
     Active Substance: PERAMPANEL
     Route: 048
     Dates: start: 20140306, end: 20140605
  2. VIMPAT [Concomitant]
     Active Substance: LACOSAMIDE
  3. KEPPRA [Concomitant]
     Active Substance: LEVETIRACETAM
  4. ATIVAN [Concomitant]
     Active Substance: LORAZEPAM
  5. FYCOMPA [Suspect]
     Active Substance: PERAMPANEL
     Indication: EPILEPSY
     Route: 048
     Dates: end: 20140305
  6. CLOBAZAM [Concomitant]
     Active Substance: CLOBAZAM

REACTIONS (5)
  - Abnormal behaviour [Unknown]
  - Aggression [Unknown]
  - Dysarthria [Unknown]
  - Feeling drunk [Unknown]
  - Gait disturbance [Unknown]

NARRATIVE: CASE EVENT DATE: 201403
